FAERS Safety Report 9839645 (Version 1)
Quarter: 2014Q1

REPORT INFORMATION
  Report Type: Spontaneous
  Country: US (occurrence: US)
  Receive Date: 20140124
  Receipt Date: 20140124
  Transmission Date: 20141002
  Serious: No
  Sender: FDA-Public Use
  Company Number: US-BIOGENIDEC-2013BI026894

PATIENT
  Age: 61 Year
  Sex: Female

DRUGS (2)
  1. AVONEX [Suspect]
     Indication: MULTIPLE SCLEROSIS
     Route: 030
     Dates: start: 20120801, end: 20131225
  2. TECFIDERA [Concomitant]
     Indication: PRODUCT USED FOR UNKNOWN INDICATION
     Dates: start: 20131205

REACTIONS (15)
  - Memory impairment [Not Recovered/Not Resolved]
  - Impatience [Not Recovered/Not Resolved]
  - Anhedonia [Not Recovered/Not Resolved]
  - Altered visual depth perception [Not Recovered/Not Resolved]
  - Oedema mouth [Recovered/Resolved]
  - Stomach mass [Recovered/Resolved]
  - Purulent discharge [Recovered/Resolved]
  - Mobility decreased [Unknown]
  - Psychiatric symptom [Not Recovered/Not Resolved]
  - Hyperaesthesia [Recovered/Resolved]
  - Frustration [Unknown]
  - Mood swings [Recovered/Resolved]
  - Depression [Not Recovered/Not Resolved]
  - Lip swelling [Recovered/Resolved]
  - Asthenia [Recovered/Resolved with Sequelae]
